FAERS Safety Report 19272355 (Version 1)
Quarter: 2021Q2

REPORT INFORMATION
  Report Type: Spontaneous
  Country: FR (occurrence: FR)
  Receive Date: 20210519
  Receipt Date: 20210519
  Transmission Date: 20210717
  Serious: Yes (Hospitalization)
  Sender: FDA-Public Use
  Company Number: FR-TEVA-2021-FR-1911529

PATIENT
  Age: 94 Year
  Sex: Female
  Weight: 52 kg

DRUGS (6)
  1. HEMIG [Concomitant]
  2. PREVISCAN [Concomitant]
  3. SERESTA [Concomitant]
     Active Substance: OXAZEPAM
  4. AMOXICILLINE [Suspect]
     Active Substance: AMOXICILLIN
     Indication: ERYSIPELAS
     Dosage: 3000 MG
     Route: 048
     Dates: start: 20210406, end: 20210414
  5. SERTRA [Concomitant]
     Active Substance: SERTRALINE HYDROCHLORIDE
  6. MIANSE [Concomitant]

REACTIONS (2)
  - Confusional state [Recovered/Resolved]
  - Hallucinations, mixed [Recovered/Resolved]

NARRATIVE: CASE EVENT DATE: 20210413
